FAERS Safety Report 16089917 (Version 1)
Quarter: 2019Q2

REPORT INFORMATION
  Report Type: Spontaneous
  Country: US (occurrence: US)
  Receive Date: 20190319
  Receipt Date: 20190319
  Transmission Date: 20190711
  Serious: No
  Sender: FDA-Public Use
  Company Number: None

PATIENT
  Sex: Male

DRUGS (18)
  1. SILDENAFIL. [Suspect]
     Active Substance: SILDENAFIL
     Indication: PULMONARY ARTERIAL HYPERTENSION
     Route: 048
     Dates: start: 20121214
  2. ACETAMINOPHEN. [Concomitant]
     Active Substance: ACETAMINOPHEN
  3. ALLEGRA [Concomitant]
     Active Substance: FEXOFENADINE HYDROCHLORIDE
  4. MAGNESIUM [Concomitant]
     Active Substance: MAGNESIUM
  5. MECLIZINE [Concomitant]
     Active Substance: MECLIZINE HYDROCHLORIDE
  6. VITAMIN B12 [Concomitant]
     Active Substance: CYANOCOBALAMIN
  7. LASIX [Concomitant]
     Active Substance: FUROSEMIDE
  8. WARFARIN [Concomitant]
     Active Substance: WARFARIN
  9. ASPIRIN. [Concomitant]
     Active Substance: ASPIRIN
  10. VITAMIN D3 [Concomitant]
     Active Substance: CHOLECALCIFEROL
  11. ALDACTONE [Concomitant]
     Active Substance: SPIRONOLACTONE
  12. ALLOPURINOL. [Concomitant]
     Active Substance: ALLOPURINOL
  13. GLUCOSAMINE [Concomitant]
     Active Substance: GLUCOSAMINE
  14. COLCRYS [Concomitant]
     Active Substance: COLCHICINE
  15. FISH OIL [Concomitant]
     Active Substance: FISH OIL
  16. LOPRESSOR [Concomitant]
     Active Substance: METOPROLOL TARTRATE
  17. MULTIVITAMIN [Concomitant]
     Active Substance: VITAMINS
  18. ZOCOR [Concomitant]
     Active Substance: SIMVASTATIN

REACTIONS (1)
  - Epistaxis [None]
